FAERS Safety Report 24150874 (Version 1)
Quarter: 2024Q3

REPORT INFORMATION
  Report Type: Spontaneous
  Country: VN (occurrence: VN)
  Receive Date: 20240730
  Receipt Date: 20240730
  Transmission Date: 20241016
  Serious: Yes (Other)
  Sender: NOVARTIS
  Company Number: VN-002147023-NVSC2024VN153756

PATIENT
  Age: 58 Year
  Sex: Female

DRUGS (3)
  1. RIBOCICLIB [Suspect]
     Active Substance: RIBOCICLIB
     Indication: Breast cancer metastatic
     Dosage: 600 MG
     Route: 065
  2. LETROZOLE [Suspect]
     Active Substance: LETROZOLE
     Indication: Breast cancer metastatic
     Dosage: 2.5 MG
     Route: 048
  3. ZOLEDRONIC ACID [Suspect]
     Active Substance: ZOLEDRONIC ACID
     Indication: Product used for unknown indication
     Dosage: 4 MG, Q3MO
     Route: 065

REACTIONS (4)
  - Leukopenia [Recovered/Resolved]
  - Metastases to central nervous system [Unknown]
  - Metastases to liver [Unknown]
  - Metastases to bone [Unknown]

NARRATIVE: CASE EVENT DATE: 20221001
